FAERS Safety Report 7771413-5 (Version None)
Quarter: 2011Q3

REPORT INFORMATION
  Report Type: 
  Country: None (occurrence: None)
  Receive Date: 20110922
  Receipt Date: 20110301
  Transmission Date: 20111222
  Serious: Yes (Hospitalization, Other)
  Sender: FDA-Public Use
  Company Number: US-ASTRAZENECA-2006UW07583

PATIENT
  Age: 335 Month
  Sex: Male
  Weight: 174.6 kg

DRUGS (28)
  1. SEROQUEL [Suspect]
     Dosage: 50 - 1000 MG
     Route: 048
     Dates: start: 19990110
  2. ZYPREXA [Suspect]
     Indication: BIPOLAR DISORDER
     Dosage: 10 MG TO 15 MG
     Dates: start: 19990401, end: 20030201
  3. ZYPREXA [Suspect]
     Route: 048
     Dates: start: 19990409, end: 19990101
  4. LIPITOR [Concomitant]
     Indication: HYPERCHOLESTEROLAEMIA
  5. HALDOL [Concomitant]
     Indication: AGITATION
     Dosage: 5 - 10 MG
     Dates: start: 19950201
  6. COGENTIN [Concomitant]
     Indication: ANGER
     Dates: start: 19950201
  7. SEROQUEL [Suspect]
     Indication: MANIA
     Route: 048
     Dates: start: 19990101
  8. SEROQUEL [Suspect]
     Dosage: 50 - 1000 MG
     Route: 048
     Dates: start: 19990110
  9. ATIVAN [Concomitant]
     Indication: AGITATION
     Dates: start: 19970128
  10. ATIVAN [Concomitant]
     Indication: ABNORMAL BEHAVIOUR
     Dates: start: 19970128
  11. ZYPREXA [Suspect]
     Dosage: 7.5 - 15 MG, AT NIGHT
     Route: 048
     Dates: start: 20001020, end: 20030218
  12. ZYPREXA [Suspect]
     Dosage: 7.5 - 15 MG, AT NIGHT
     Route: 048
     Dates: start: 20001020, end: 20030218
  13. LITHIUM CARBONATE [Concomitant]
     Indication: BIPOLAR I DISORDER
     Dosage: 300 - 1200 MG
     Route: 048
     Dates: start: 19950201
  14. COGENTIN [Concomitant]
     Indication: BIPOLAR I DISORDER
     Dates: start: 19950201
  15. SEROQUEL [Suspect]
     Indication: INSOMNIA
     Route: 048
     Dates: start: 19990101
  16. SEROQUEL [Suspect]
     Dosage: 50 - 1000 MG
     Route: 048
     Dates: start: 19990110
  17. DEPAKOTE [Concomitant]
     Indication: MANIA
     Dosage: 500 MG TWICE A DAY, 1000 MG THREE TIMES A DAY
     Route: 048
     Dates: start: 19981112
  18. DEPAKOTE [Concomitant]
     Indication: IRRITABILITY
     Dosage: 500 MG TWICE A DAY, 1000 MG THREE TIMES A DAY
     Route: 048
     Dates: start: 19981112
  19. SEROQUEL [Suspect]
     Indication: BIPOLAR DISORDER
     Route: 048
     Dates: start: 19990101
  20. HALDOL [Concomitant]
     Indication: BIPOLAR I DISORDER
     Dosage: 5 - 10 MG
     Dates: start: 19950201
  21. ZYPREXA [Suspect]
     Indication: AFFECTIVE DISORDER
     Dosage: 10 MG TO 15 MG
     Dates: start: 19990401, end: 20030201
  22. ZYPREXA [Suspect]
     Route: 048
     Dates: start: 19990409, end: 19990101
  23. GLUCOTROL [Concomitant]
     Route: 048
     Dates: start: 20050126
  24. DEPAKOTE [Concomitant]
     Indication: AFFECTIVE DISORDER
     Dosage: 500 MG TWICE A DAY, 1000 MG THREE TIMES A DAY
     Route: 048
     Dates: start: 19981112
  25. HALDOL [Concomitant]
     Indication: ANGER
     Dosage: 5 - 10 MG
     Dates: start: 19950201
  26. COGENTIN [Concomitant]
     Indication: AGITATION
     Dates: start: 19950201
  27. HUMALOG [Concomitant]
     Dosage: 75 / 25, 30 - 50 UNITS
     Route: 058
     Dates: start: 20030903
  28. LISINOPRIL [Concomitant]
     Indication: HYPERTENSION
     Route: 048

REACTIONS (6)
  - DIABETES MELLITUS [None]
  - DIABETIC KETOACIDOSIS [None]
  - PANCREATITIS [None]
  - DIABETIC COMA [None]
  - TYPE 2 DIABETES MELLITUS [None]
  - DIABETES MELLITUS INADEQUATE CONTROL [None]
